FAERS Safety Report 16829845 (Version 4)
Quarter: 2020Q2

REPORT INFORMATION
  Report Type: Report from Study
  Country: US (occurrence: US)
  Receive Date: 20190919
  Receipt Date: 20200415
  Transmission Date: 20200713
  Serious: Yes (Death, Other)
  Sender: FDA-Public Use
  Company Number: US-ACTELION-A-US2019-187537

PATIENT
  Age: 36 Year
  Sex: Female
  Weight: 56.24 kg

DRUGS (6)
  1. VELETRI [Suspect]
     Active Substance: EPOPROSTENOL
     Indication: PULMONARY HYPERTENSION
     Dosage: 20.5 NG/KG, PER MIN
     Route: 042
  2. VELETRI [Suspect]
     Active Substance: EPOPROSTENOL
     Dosage: 15 NG/KG, PER MIN
     Route: 042
  3. OPSUMIT [Suspect]
     Active Substance: MACITENTAN
     Indication: PULMONARY HYPERTENSION
     Dosage: 10 MG, QD
     Route: 048
  4. VELETRI [Suspect]
     Active Substance: EPOPROSTENOL
     Dosage: 12 NG/KG, PER MIN
     Route: 042
  5. VELETRI [Suspect]
     Active Substance: EPOPROSTENOL
     Dosage: 15.4 NG/KG, PER MIN
     Route: 042
  6. ADCIRCA [Concomitant]
     Active Substance: TADALAFIL

REACTIONS (15)
  - Unevaluable event [Unknown]
  - Nausea [Unknown]
  - Pain [Unknown]
  - Rib fracture [Unknown]
  - Fatigue [Unknown]
  - Death [Fatal]
  - Flushing [Unknown]
  - Headache [Unknown]
  - Myalgia [Unknown]
  - Stitch abscess [Unknown]
  - Drug tolerance decreased [Unknown]
  - Dyspnoea exertional [Unknown]
  - Diarrhoea [Unknown]
  - Fall [Unknown]
  - Infusion site discharge [Unknown]

NARRATIVE: CASE EVENT DATE: 20190902
